FAERS Safety Report 6240144-5 (Version None)
Quarter: 2009Q2

REPORT INFORMATION
  Report Type: 
  Country: None (occurrence: None)
  Receive Date: 20090618
  Receipt Date: 20090618
  Transmission Date: 20091009
  Serious: Yes (Other)
  Sender: FDA-Public Use
  Company Number: None

PATIENT
  Age: 30 Year
  Sex: Female
  Weight: 140.6151 kg

DRUGS (2)
  1. VYVANSE [Suspect]
     Indication: HYPERSOMNIA
     Dosage: ONE CAPSULE ONCE DAILY PO
     Route: 048
     Dates: start: 20090401, end: 20090414
  2. VYVANSE [Suspect]
     Indication: SLEEP APNOEA SYNDROME
     Dosage: ONE CAPSULE ONCE DAILY PO
     Route: 048
     Dates: start: 20090401, end: 20090414

REACTIONS (4)
  - DIZZINESS [None]
  - DYSARTHRIA [None]
  - FATIGUE [None]
  - MOOD SWINGS [None]
